FAERS Safety Report 9816995 (Version 4)
Quarter: 2015Q3

REPORT INFORMATION
  Report Type: Report from Study
  Country: JP (occurrence: JP)
  Receive Date: 20140114
  Receipt Date: 20150803
  Transmission Date: 20151125
  Serious: Yes (Other)
  Sender: FDA-Public Use
  Company Number: JP-GLAXOSMITHKLINE-B0959516A

PATIENT

DRUGS (12)
  1. LAMOTRIGINE. [Suspect]
     Active Substance: LAMOTRIGINE
     Dosage: 200 MG, 1D
     Route: 064
     Dates: start: 20100827
  2. DEPAKENE [Concomitant]
     Active Substance: VALPROIC ACID
     Indication: EPILEPSY
     Dosage: 500 MG, 1D
     Route: 064
  3. DEPAKENE [Concomitant]
     Active Substance: VALPROIC ACID
     Dosage: 200 MG, 1D
     Route: 064
     Dates: start: 20100325, end: 20100428
  4. LAMOTRIGINE. [Suspect]
     Active Substance: LAMOTRIGINE
     Dosage: 75 MG, 1D
     Route: 064
     Dates: start: 20100304, end: 20100611
  5. DEPAKENE [Concomitant]
     Active Substance: VALPROIC ACID
     Dosage: 100 MG, 1D
     Route: 064
     Dates: start: 20100429, end: 20141021
  6. LAMOTRIGINE. [Suspect]
     Active Substance: LAMOTRIGINE
     Dosage: 100 MG, 1D
     Route: 064
     Dates: start: 20100612, end: 20100826
  7. LAMOTRIGINE. [Suspect]
     Active Substance: LAMOTRIGINE
     Dosage: 50 MG, 1D
     Route: 064
     Dates: start: 20100204, end: 20100303
  8. DEPAKENE [Concomitant]
     Active Substance: VALPROIC ACID
     Indication: GENERALISED TONIC-CLONIC SEIZURE
     Dosage: 400 MG, 1D
     Route: 064
     Dates: start: 20100204, end: 20100304
  9. DEPAKENE [Concomitant]
     Active Substance: VALPROIC ACID
     Dosage: 300 MG, 1D
     Route: 064
     Dates: start: 20100305, end: 20100324
  10. LAMOTRIGINE. [Suspect]
     Active Substance: LAMOTRIGINE
     Indication: EPILEPSY
     Dosage: 25 MG, QOD
     Route: 064
     Dates: end: 20100113
  11. LAMOTRIGINE. [Suspect]
     Active Substance: LAMOTRIGINE
     Indication: GENERALISED TONIC-CLONIC SEIZURE
     Dosage: 25 MG, 1D
     Route: 064
     Dates: start: 20100128, end: 20100203
  12. FOLIC ACID. [Concomitant]
     Active Substance: FOLIC ACID
     Dosage: 0.4 MG, QD
     Route: 064

REACTIONS (3)
  - Selective abortion [Unknown]
  - Foetal exposure during pregnancy [Unknown]
  - Foetal growth restriction [Not Recovered/Not Resolved]

NARRATIVE: CASE EVENT DATE: 201312
